FAERS Safety Report 24459548 (Version 1)
Quarter: 2024Q4

REPORT INFORMATION
  Report Type: Spontaneous
  Country: US (occurrence: None)
  Receive Date: 20241012
  Receipt Date: 20241012
  Transmission Date: 20250115
  Serious: Yes (unspecified)
  Sender: Public
  Company Number: None

PATIENT
  Age: 61 Year
  Sex: Female
  Weight: 58.5 kg

DRUGS (12)
  1. HERBALS [Suspect]
     Active Substance: HERBALS
     Indication: Skin disorder
     Dates: start: 20240709, end: 20240716
  2. COSMETICS [Suspect]
     Active Substance: COSMETICS
  3. COSMETICS [Suspect]
     Active Substance: COSMETICS
  4. COSMETICS [Suspect]
     Active Substance: COSMETICS
  5. COSMETICS [Suspect]
     Active Substance: COSMETICS
  6. COSMETICS [Suspect]
     Active Substance: COSMETICS
  7. COSMETICS [Suspect]
     Active Substance: COSMETICS
  8. COSMETICS [Suspect]
     Active Substance: COSMETICS
  9. COSMETICS [Suspect]
     Active Substance: COSMETICS
  10. COSMETICS [Suspect]
     Active Substance: COSMETICS
  11. COSMETICS [Suspect]
     Active Substance: COSMETICS
  12. COSMETICS [Suspect]
     Active Substance: COSMETICS

REACTIONS (2)
  - Swelling face [None]
  - Suspected product quality issue [None]

NARRATIVE: CASE EVENT DATE: 20240709
